FAERS Safety Report 11183550 (Version 2)
Quarter: 2015Q2

REPORT INFORMATION
  Report Type: Report from Study
  Country: FR (occurrence: FR)
  Receive Date: 20150612
  Receipt Date: 20150625
  Transmission Date: 20150821
  Serious: Yes (Life-Threatening)
  Sender: FDA-Public Use
  Company Number: FR-009507513-1506FRA002977

PATIENT
  Age: 78 Year
  Sex: Male

DRUGS (5)
  1. FIDAXOMICIN [Suspect]
     Active Substance: FIDAXOMICIN
     Indication: CLOSTRIDIUM DIFFICILE INFECTION
     Dosage: 400 MG, QD
     Route: 048
     Dates: start: 20150422, end: 20150503
  2. XATRAL [Concomitant]
     Active Substance: ALFUZOSIN
     Dosage: SINGLE DOSE: 10 (UNIT NOT PROVIDED), FREQUENCY: 1
     Route: 048
  3. RISPERDAL [Concomitant]
     Active Substance: RISPERIDONE
     Indication: INSOMNIA
     Dosage: SINGLE DOSE: 0.5(UNIT NOT PROVIDED), FREQUENCY: 1
     Route: 048
  4. TAHOR [Concomitant]
     Active Substance: ATORVASTATIN CALCIUM
     Indication: HYPERCHOLESTEROLAEMIA
     Dosage: SINGLE DOSE: 20 (UNIT NOT PROVIDED),  FREQUENCY: 1
     Route: 048
  5. SERESTA [Concomitant]
     Active Substance: OXAZEPAM
     Indication: INSOMNIA
     Dosage: SINGLE DOSE: 0.5 (UNIT NOT PROVIDED),  FREQUENCY: 3
     Route: 048

REACTIONS (3)
  - Drug ineffective [Unknown]
  - Clostridium difficile infection [Recovered/Resolved]
  - Incorrect drug administration duration [Unknown]

NARRATIVE: CASE EVENT DATE: 2015
